FAERS Safety Report 5127821-4 (Version None)
Quarter: 2006Q4

REPORT INFORMATION
  Report Type: 
  Country: None (occurrence: None)
  Receive Date: 20061016
  Receipt Date: 20061009
  Transmission Date: 20070319
  Serious: Yes (Death)
  Sender: FDA-Public Use
  Company Number: PHBS2006US15844

PATIENT
  Age: 66 Year
  Sex: Female

DRUGS (3)
  1. SIMULECT [Suspect]
     Indication: GRAFT VERSUS HOST DISEASE
     Dosage: 20 MG/DAY
  2. ATGAM [Concomitant]
  3. TACROLIMUS [Concomitant]
     Dosage: 0.5-5 MG/DAY
     Route: 048

REACTIONS (2)
  - ENTEROCOCCAL SEPSIS [None]
  - MULTI-ORGAN FAILURE [None]
